FAERS Safety Report 7071798 (Version 2)
Quarter: 2012Q4

REPORT INFORMATION
  Report Type: Spontaneous
  Country: GB (occurrence: None)
  Receive Date: 20090728
  Receipt Date: 20121220
  Transmission Date: 20130627
  Serious: Yes (Life-Threatening, Hospitalization)
  Sender: FDA-Public Use
  Company Number: 2006EU001271

PATIENT
  Age: 33 Year
  Sex: Male
  Weight: 91 kg

DRUGS (33)
  1. TACROLIMUS SYSTEMIC (TACROLIMUS) [Suspect]
     Indication: PROPHYLAXIS AGAINST RENAL TRANSPLANT REJECTION
     Route: 048
  2. TACROLIMUS SYSTEMIC (TACROLIMUS) [Suspect]
     Indication: PROPHYLAXIS AGAINST RENAL TRANSPLANT REJECTION
     Route: 048
     Dates: start: 20070425
  3. TACROLIMUS SYSTEMIC (TACROLIMUS) [Suspect]
     Indication: PROPHYLAXIS AGAINST RENAL TRANSPLANT REJECTION
  4. DACLIZUMAB [Suspect]
     Indication: PROPHYLAXIS AGAINST RENAL TRANSPLANT REJECTION
     Route: 042
     Dates: start: 20040616, end: 20040616
  5. DACLIZUMAB [Suspect]
     Indication: PROPHYLAXIS AGAINST RENAL TRANSPLANT REJECTION
     Route: 042
     Dates: start: 20040630, end: 20040809
  6. MYCOPHENOLATE MOFETIL [Suspect]
     Indication: PROPHYLAXIS AGAINST RENAL TRANSPLANT REJECTION
     Route: 048
     Dates: end: 20070426
  7. MYCOPHENOLATE MOFETIL [Suspect]
     Indication: PROPHYLAXIS AGAINST RENAL TRANSPLANT REJECTION
     Dosage: 1 G, BID, ORAL; 500 MG, BID,
     Route: 048
     Dates: start: 20070427
  8. MYCOPHENOLATE MOFETIL [Suspect]
     Indication: PROPHYLAXIS AGAINST RENAL TRANSPLANT REJECTION
     Route: 048
     Dates: start: 20070430
  9. MYCOPHENOLATE MOFETIL [Suspect]
     Indication: PROPHYLAXIS AGAINST RENAL TRANSPLANT REJECTION
     Route: 048
     Dates: start: 20040616
  10. MYCOPHENOLATE MOFETIL [Suspect]
     Indication: PROPHYLAXIS AGAINST RENAL TRANSPLANT REJECTION
     Route: 048
     Dates: start: 20040819
  11. MYCOPHENOLATE MOFETIL [Suspect]
     Indication: PROPHYLAXIS AGAINST RENAL TRANSPLANT REJECTION
     Route: 048
     Dates: start: 20040901
  12. MYCOPHENOLATE MOFETIL [Suspect]
     Indication: PROPHYLAXIS AGAINST RENAL TRANSPLANT REJECTION
     Route: 048
     Dates: start: 20050420
  13. PREDNISONE [Suspect]
     Indication: PROPHYLAXIS AGAINST RENAL TRANSPLANT REJECTION
     Dosage: UID/QD
     Route: 048
     Dates: start: 20040618
  14. PREDNISONE [Suspect]
     Indication: PROPHYLAXIS AGAINST RENAL TRANSPLANT REJECTION
  15. SIROLIMUS [Suspect]
     Indication: PROPHYLAXIS AGAINST RENAL TRANSPLANT REJECTION
     Dosage: UID/QD
     Route: 048
     Dates: start: 20040616, end: 20040818
  16. METHYLPREDNISOLONE [Suspect]
     Indication: PROPHYLAXIS AGAINST RENAL TRANSPLANT REJECTION
     Route: 042
     Dates: start: 20040116, end: 20040116
  17. METHYLPREDNISOLONE [Suspect]
     Indication: PROPHYLAXIS AGAINST RENAL TRANSPLANT REJECTION
     Route: 042
     Dates: start: 20040117
  18. METHYLPREDNISOLONE [Suspect]
     Indication: PROPHYLAXIS AGAINST RENAL TRANSPLANT REJECTION
     Dosage: UID/QD
     Route: 042
     Dates: start: 20040817
  19. METHYLPREDNISOLONE [Suspect]
     Indication: PROPHYLAXIS AGAINST RENAL TRANSPLANT REJECTION
     Route: 042
     Dates: start: 20040820, end: 20040820
  20. METHYLPREDNISOLONE [Suspect]
     Indication: PROPHYLAXIS AGAINST RENAL TRANSPLANT REJECTION
     Route: 042
     Dates: start: 20040823
  21. METHYLPREDNISOLONE [Suspect]
     Indication: PROPHYLAXIS AGAINST RENAL TRANSPLANT REJECTION
     Route: 042
     Dates: start: 20040825
  22. METHYLPREDNISOLONE [Suspect]
     Indication: PROPHYLAXIS AGAINST RENAL TRANSPLANT REJECTION
     Dosage: UID/QD
     Route: 042
     Dates: start: 20041020, end: 20041023
  23. OMEPRAZOLE [Concomitant]
  24. FLUVASTATIN [Concomitant]
  25. VALACYCLOVIR [Concomitant]
  26. METOCLOPRAMID (METOCLOPRAMIDE HYDROCHLORIDE) [Concomitant]
  27. LEVETIRACETAM [Concomitant]
  28. AMLODIPINE [Concomitant]
  29. AMPHOTERICIN B [Concomitant]
  30. DOXAZOSIN (DOXAZOSIN MESILATE) [Concomitant]
  31. METOPROLOL SUCCINATE [Concomitant]
  32. RAMIPRIL [Concomitant]
  33. SULFAMETHOXAZOLE AND TRIMETHOPRIM (SULFAMETHOXAZOLE, TRIMETHOPRIM) [Concomitant]

REACTIONS (8)
  - Septic shock [None]
  - Hernia obstructive [None]
  - Ileus [None]
  - Pneumonia pneumococcal [None]
  - Suture rupture [None]
  - Intestinal infarction [None]
  - Respiratory failure [None]
  - Blood creatinine increased [None]
